FAERS Safety Report 25447065 (Version 1)
Quarter: 2025Q2

REPORT INFORMATION
  Report Type: Spontaneous
  Country: US (occurrence: US)
  Receive Date: 20250617
  Receipt Date: 20250617
  Transmission Date: 20250716
  Serious: No
  Sender: SANOFI AVENTIS
  Company Number: US-SA-2025SA170644

PATIENT
  Age: 84 Year
  Sex: Female
  Weight: 70.748 kg

DRUGS (9)
  1. DUPIXENT [Suspect]
     Active Substance: DUPILUMAB
     Indication: Asthma
     Dosage: 300 MG, QOW
     Route: 058
     Dates: end: 202504
  2. MAGNESIUM [Concomitant]
     Active Substance: MAGNESIUM
  3. FUROSEMIDE [Concomitant]
     Active Substance: FUROSEMIDE
  4. VITAMIN D3 [Concomitant]
     Active Substance: CHOLECALCIFEROL
  5. CITRACAL + D3 [Concomitant]
  6. ALBUTEROL SULFATE [Concomitant]
     Active Substance: ALBUTEROL SULFATE
  7. PRAVASTATIN SODIUM [Concomitant]
     Active Substance: PRAVASTATIN SODIUM
  8. ASPIRIN [Concomitant]
     Active Substance: ASPIRIN
  9. MONTELUKAST SODIUM [Concomitant]
     Active Substance: MONTELUKAST SODIUM

REACTIONS (4)
  - Skin mass [Recovering/Resolving]
  - Tendonitis [Recovering/Resolving]
  - Eosinophil count increased [Unknown]
  - Superficial vein prominence [Unknown]

NARRATIVE: CASE EVENT DATE: 20250404
